FAERS Safety Report 7246877-6 (Version None)
Quarter: 2011Q1

REPORT INFORMATION
  Report Type: 
  Country: None (occurrence: None)
  Receive Date: 20110127
  Receipt Date: 20110113
  Transmission Date: 20110831
  Serious: Yes (Other)
  Sender: FDA-Public Use
  Company Number: ES-ELI_LILLY_AND_COMPANY-ES201101003227

PATIENT
  Sex: Male
  Weight: 80 kg

DRUGS (2)
  1. FORTEO [Suspect]
     Indication: OSTEOPOROSIS
     Dosage: 20 UG, DAILY (1/D)
     Route: 058
     Dates: start: 20100215
  2. PARACETAMOL [Concomitant]
     Indication: PAIN
     Dosage: IF NEEDED
     Route: 048

REACTIONS (1)
  - DEVICE BREAKAGE [None]
